FAERS Safety Report 8876013 (Version 2)
Quarter: 2013Q1

REPORT INFORMATION
  Report Type: Report from Study
  Country: US (occurrence: US)
  Receive Date: 20121023
  Receipt Date: 20130304
  Transmission Date: 20140127
  Serious: No
  Sender: FDA-Public Use
  Company Number: US-VERTEX PHARMACEUTICAL INC.-2012-023190

PATIENT
  Age: 58 Year
  Sex: Male
  Weight: 113 kg

DRUGS (7)
  1. VX-950 (TELAPREVIR) [Suspect]
     Indication: HEPATITIS C
     Dosage: 750 MG, TID
     Route: 048
  2. PEGASYS [Suspect]
     Indication: HEPATITIS C
  3. RIBAPAK [Suspect]
     Indication: HEPATITIS C
     Dosage: 600/DAY
  4. VICOPROFEN [Concomitant]
     Dosage: 7.5-200
  5. MILK THISTLE [Concomitant]
  6. SOMA [Concomitant]
     Dosage: 250 MG
  7. CENTRUM SILVER [Concomitant]

REACTIONS (7)
  - Pyrexia [Unknown]
  - Skin irritation [Unknown]
  - Tongue exfoliation [Unknown]
  - Irritability [Unknown]
  - Dry mouth [Unknown]
  - Fatigue [Unknown]
  - Anaemia [Unknown]
